FAERS Safety Report 7406629-0 (Version None)
Quarter: 2011Q2

REPORT INFORMATION
  Report Type: 
  Country: None (occurrence: None)
  Receive Date: 20110411
  Receipt Date: 20110405
  Transmission Date: 20111010
  Serious: Yes (Life-Threatening)
  Sender: FDA-Public Use
  Company Number: CA-SANOFI-AVENTIS-2011SA009044

PATIENT
  Age: 65 Year
  Sex: Male

DRUGS (10)
  1. IRINOTECAN [Concomitant]
     Dates: start: 20101222, end: 20101222
  2. ELOXATIN [Suspect]
     Route: 042
     Dates: start: 20101102, end: 20101102
  3. ASPIRIN [Concomitant]
     Indication: THROMBOSIS PROPHYLAXIS
     Route: 048
  4. MICARDIS [Concomitant]
     Indication: HYPERTENSION
     Route: 048
  5. TAMSULOSIN HYDROCHLORIDE [Concomitant]
     Route: 048
  6. ELOXATIN [Suspect]
     Route: 042
     Dates: start: 20101222, end: 20101222
  7. LIPITOR [Concomitant]
     Route: 048
  8. MONOCOR [Concomitant]
     Route: 048
  9. ELOXATIN [Suspect]
     Route: 042
     Dates: start: 20101019, end: 20101019
  10. AVODART [Concomitant]
     Route: 048

REACTIONS (7)
  - ABDOMINAL PAIN [None]
  - DISCOMFORT [None]
  - BLOOD PRESSURE INCREASED [None]
  - GENERALISED ERYTHEMA [None]
  - MYOCARDIAL INFARCTION [None]
  - CHEST PAIN [None]
  - VOMITING [None]
